FAERS Safety Report 11661419 (Version 2)
Quarter: 2015Q4

REPORT INFORMATION
  Report Type: Spontaneous
  Country: JP (occurrence: JP)
  Receive Date: 20151026
  Receipt Date: 20151028
  Transmission Date: 20160304
  Serious: Yes (Other)
  Sender: FDA-Public Use
  Company Number: JP-SA-2015SA167074

PATIENT
  Sex: Male

DRUGS (2)
  1. CABAZITAXEL [Suspect]
     Active Substance: CABAZITAXEL
     Indication: PROSTATE CANCER METASTATIC
     Route: 065
     Dates: start: 201410
  2. DOCETAXEL. [Concomitant]
     Active Substance: DOCETAXEL
     Dosage: 11 CYCLES

REACTIONS (4)
  - Haematuria [Recovered/Resolved]
  - Cystitis haemorrhagic [Recovered/Resolved]
  - Mucosal inflammation [Recovered/Resolved]
  - Cystoscopy abnormal [Recovered/Resolved]
